FAERS Safety Report 7619768-6 (Version None)
Quarter: 2011Q3

REPORT INFORMATION
  Report Type: 
  Country: None (occurrence: None)
  Receive Date: 20110719
  Receipt Date: 20110713
  Transmission Date: 20111222
  Serious: Yes (Life-Threatening, Hospitalization)
  Sender: FDA-Public Use
  Company Number: BE-CELGENEUS-013-21880-10092559

PATIENT
  Sex: Male
  Weight: 54 kg

DRUGS (8)
  1. OMEPRAZOLE [Concomitant]
     Indication: DRUG THERAPY
     Dosage: 20 MILLIGRAM
     Route: 048
     Dates: start: 20060101
  2. CYCLOPHOSPHAMIDE [Suspect]
     Indication: MULTIPLE MYELOMA
     Dosage: 50 MILLIGRAM
     Route: 048
     Dates: start: 20100712
  3. CYCLOPHOSPHAMIDE [Suspect]
     Dosage: 50 MILLIGRAM
     Route: 048
     Dates: start: 20100906, end: 20100914
  4. PRAMIPEXOLE DIHYCHLLORIDE [Concomitant]
     Indication: PARKINSON'S DISEASE
     Dosage: .15 GRAM
     Route: 048
     Dates: start: 20100101
  5. REVLIMID [Suspect]
     Indication: MULTIPLE MYELOMA
     Dosage: 5 MILLIGRAM
     Route: 048
     Dates: start: 20100712
  6. LEVOTHYROXINE SODIUM [Concomitant]
     Indication: THYROXINE THERAPY
     Dosage: 50 MILLIGRAM
     Route: 048
     Dates: start: 20080101
  7. REVLIMID [Suspect]
     Dosage: 5 MILLIGRAM
     Route: 048
     Dates: start: 20100906, end: 20100914
  8. ACYCLOVIR [Concomitant]
     Dosage: 800 MILLIGRAM
     Route: 048
     Dates: start: 20060101

REACTIONS (2)
  - ESCHERICHIA INFECTION [None]
  - SEPTIC SHOCK [None]
